FAERS Safety Report 8797418 (Version 2)
Quarter: 2015Q3

REPORT INFORMATION
  Report Type: Report from Study
  Country: US (occurrence: US)
  Receive Date: 20120919
  Receipt Date: 20150713
  Transmission Date: 20151125
  Serious: Yes (Death)
  Sender: FDA-Public Use
  Company Number: US-ROCHE-CID000000002091339

PATIENT
  Age: 62 Year
  Sex: Male

DRUGS (19)
  1. AMARYL [Concomitant]
     Active Substance: GLIMEPIRIDE
     Route: 048
  2. TEMODAR [Concomitant]
     Active Substance: TEMOZOLOMIDE
  3. BENICAR [Concomitant]
     Active Substance: OLMESARTAN MEDOXOMIL
     Dosage: 20/12.5 MG
     Route: 048
  4. DECADRON [Concomitant]
     Active Substance: DEXAMETHASONE
     Route: 042
  5. CAMPTOSAR [Concomitant]
     Active Substance: IRINOTECAN HYDROCHLORIDE
     Route: 042
     Dates: start: 200801
  6. GLUCOPHAGE [Concomitant]
     Active Substance: METFORMIN HYDROCHLORIDE
     Route: 048
  7. BENADRYL [Concomitant]
     Active Substance: DIPHENHYDRAMINE HYDROCHLORIDE
     Route: 048
  8. ETOPOSIDE. [Concomitant]
     Active Substance: ETOPOSIDE
     Route: 065
     Dates: start: 200803
  9. AVASTIN [Suspect]
     Active Substance: BEVACIZUMAB
     Dosage: 23/APR/2008, 09/MAY/2008
     Route: 042
  10. ZOFRAN [Concomitant]
     Active Substance: ONDANSETRON HYDROCHLORIDE
     Route: 048
  11. LIPITOR [Concomitant]
     Active Substance: ATORVASTATIN CALCIUM
  12. IMODIUM [Concomitant]
     Active Substance: LOPERAMIDE HYDROCHLORIDE
  13. AVASTIN [Suspect]
     Active Substance: BEVACIZUMAB
     Indication: BRAIN NEOPLASM MALIGNANT
     Dosage: 16/JAN/2008, 17/JAN/2008, 30/JAN/2008, 27/FEB/2008, 12/MAR/2008 AND 09/APR/2008.
     Route: 042
  14. KEPPRA [Concomitant]
     Active Substance: LEVETIRACETAM
     Route: 048
  15. TRICOR [Concomitant]
     Active Substance: FENOFIBRATE
     Route: 048
  16. ATROPINE. [Concomitant]
     Active Substance: ATROPINE
     Route: 042
  17. ATENOLOL + CHLORTHALIDONE [Concomitant]
     Dosage: 50/25 MG
     Route: 048
  18. ACTOS [Concomitant]
     Active Substance: PIOGLITAZONE HYDROCHLORIDE
     Route: 048
  19. PEPCID [Concomitant]
     Active Substance: FAMOTIDINE
     Route: 065

REACTIONS (21)
  - Dizziness [Unknown]
  - Hypotension [Unknown]
  - Hyporeflexia [Unknown]
  - Hyperglycaemia [Unknown]
  - Disease progression [Unknown]
  - Off label use [Unknown]
  - Faecal incontinence [Unknown]
  - Tumour necrosis [Unknown]
  - Fatigue [Unknown]
  - Diarrhoea [Unknown]
  - Performance status decreased [Unknown]
  - Confusional state [Unknown]
  - Fall [Unknown]
  - Headache [Unknown]
  - Rectal haemorrhage [Recovered/Resolved]
  - Bradycardia [Unknown]
  - Death [Fatal]
  - Prostatitis [Unknown]
  - Blood creatinine increased [Unknown]
  - Hypovolaemia [Unknown]
  - Seizure [Unknown]

NARRATIVE: CASE EVENT DATE: 20080705
